FAERS Safety Report 5357708-3 (Version None)
Quarter: 2007Q2

REPORT INFORMATION
  Report Type: 
  Country: None (occurrence: None)
  Receive Date: 20070614
  Receipt Date: 20070602
  Transmission Date: 20071010
  Serious: Yes (Other)
  Sender: FDA-Public Use
  Company Number: FR-PFIZER INC-2007047077

PATIENT
  Age: 63 Year
  Sex: Male

DRUGS (9)
  1. TAHOR [Suspect]
     Dosage: TEXT:40MG
  2. CLOPIDOGREL BISULFATE [Concomitant]
  3. ASPIRIN [Concomitant]
  4. ESOMEPRAZOLE MAGNESIUM [Concomitant]
  5. PERINDOPRIL ERBUMINE [Concomitant]
  6. VERAPAMIL HYDROCHLORIDE [Concomitant]
  7. ZOPICLONE [Concomitant]
  8. MACROGOL [Concomitant]
     Dosage: TEXT:4000
  9. VAGOSTABYL [Concomitant]

REACTIONS (3)
  - NAUSEA [None]
  - TREMOR [None]
  - VERTIGO [None]
